FAERS Safety Report 6758977-5 (Version None)
Quarter: 2010Q2

REPORT INFORMATION
  Report Type: 
  Country: None (occurrence: None)
  Receive Date: 20100602
  Receipt Date: 20100521
  Transmission Date: 20101027
  Serious: Yes (Hospitalization)
  Sender: FDA-Public Use
  Company Number: TPA2010A03066

PATIENT
  Age: 88 Year
  Sex: Female
  Weight: 41.7309 kg

DRUGS (1)
  1. KAPIDEX (DEXLANSOPRAZOLE) [Suspect]
     Dosage: 60 MG, 1 IN 1 D, PER ORAL
     Route: 048
     Dates: start: 20100407, end: 20100508

REACTIONS (7)
  - DIZZINESS [None]
  - GASTRIC INFECTION [None]
  - HEADACHE [None]
  - MUSCULOSKELETAL PAIN [None]
  - NECK PAIN [None]
  - PAIN IN EXTREMITY [None]
  - VISION BLURRED [None]
